FAERS Safety Report 19163194 (Version 1)
Quarter: 2021Q2

REPORT INFORMATION
  Report Type: Spontaneous
  Country: IT (occurrence: IT)
  Receive Date: 20210421
  Receipt Date: 20210421
  Transmission Date: 20210717
  Serious: Yes (Other)
  Sender: FDA-Public Use
  Company Number: IT-BAYER-2021-127693

PATIENT
  Age: 69 Year
  Sex: Female

DRUGS (1)
  1. GADOVIST [Suspect]
     Active Substance: GADOBUTROL
     Indication: MAGNETIC RESONANCE IMAGING BREAST
     Route: 042
     Dates: start: 20210401, end: 20210401

REACTIONS (4)
  - Rash [Recovering/Resolving]
  - Dysphonia [Recovering/Resolving]
  - Syncope [Recovering/Resolving]
  - Hypotension [Recovering/Resolving]

NARRATIVE: CASE EVENT DATE: 20210401
